FAERS Safety Report 7625167-3 (Version None)
Quarter: 2011Q3

REPORT INFORMATION
  Report Type: 
  Country: None (occurrence: None)
  Receive Date: 20110712
  Receipt Date: 20110627
  Transmission Date: 20111222
  Serious: Yes (Life-Threatening, Hospitalization, Other)
  Sender: FDA-Public Use
  Company Number: 2009S1005550

PATIENT
  Age: 61 Year
  Sex: Male
  Weight: 90.7194 kg

DRUGS (10)
  1. LIPITOR [Concomitant]
  2. ASPIRIN [Concomitant]
  3. METFORMIN HCL [Concomitant]
  4. NPH INSULIN [Concomitant]
  5. HYDROCHLOROTHIAZIDE [Concomitant]
  6. SYNTHROID [Concomitant]
  7. LISINOPRIL [Concomitant]
  8. PHOSPHO SODA [Suspect]
     Indication: COLONOSCOPY
  9. METOPROLOL TARTRATE [Concomitant]
  10. ATACAND [Concomitant]

REACTIONS (1)
  - RENAL FAILURE ACUTE [None]
